FAERS Safety Report 4873229-6 (Version None)
Quarter: 2006Q1

REPORT INFORMATION
  Report Type: 
  Country: None (occurrence: None)
  Receive Date: 20060105
  Receipt Date: 20050725
  Transmission Date: 20060701
  Serious: Yes (Hospitalization, Disabling)
  Sender: FDA-Public Use
  Company Number: US-MERCK-0507USA03913

PATIENT
  Age: 56 Year
  Sex: Male
  Weight: 114 kg

DRUGS (5)
  1. VIOXX [Suspect]
     Indication: PAIN
     Route: 048
     Dates: start: 20020601, end: 20030901
  2. VIOXX [Suspect]
     Route: 048
     Dates: start: 20040208, end: 20040301
  3. VIOXX [Suspect]
     Indication: BACK INJURY
     Route: 048
     Dates: start: 20020601, end: 20030901
  4. VIOXX [Suspect]
     Route: 048
     Dates: start: 20040208, end: 20040301
  5. CELEBREX [Suspect]
     Indication: PAIN
     Route: 048
     Dates: start: 20030202, end: 20030916

REACTIONS (1)
  - MYOCARDIAL INFARCTION [None]
